FAERS Safety Report 11591247 (Version 1)
Quarter: 2015Q4

REPORT INFORMATION
  Report Type: Spontaneous
  Country: CA (occurrence: CA)
  Receive Date: 20151004
  Receipt Date: 20151004
  Transmission Date: 20160304
  Serious: Yes (Other)
  Sender: FDA-Public Use
  Company Number: CA-TEVA-597442ACC

PATIENT
  Age: 65 Year
  Sex: Male

DRUGS (2)
  1. ATENOLOL TABLETS, BP [Suspect]
     Active Substance: ATENOLOL
     Indication: HYPERTENSION
     Dosage: 50 MILLIGRAM DAILY;
     Route: 048
  2. CARBAMAZEPINE CR [Concomitant]

REACTIONS (5)
  - Hyperhidrosis [Unknown]
  - Product substitution issue [Unknown]
  - Dizziness [Unknown]
  - Flushing [Unknown]
  - Libido decreased [Unknown]
